FAERS Safety Report 19422243 (Version 1)
Quarter: 2021Q2

REPORT INFORMATION
  Report Type: Spontaneous
  Country: FR (occurrence: FR)
  Receive Date: 20210616
  Receipt Date: 20210616
  Transmission Date: 20210717
  Serious: Yes (Hospitalization)
  Sender: FDA-Public Use
  Company Number: FR-SUN PHARMACEUTICAL INDUSTRIES LTD-2021RR-300891

PATIENT
  Age: 88 Year
  Sex: Female
  Weight: 80 kg

DRUGS (7)
  1. COLCHIMAX (COLCHICINE\OPIUM\TIEMONIUM METHYLSULFATE) [Suspect]
     Active Substance: COLCHICINE\OPIUM\TIEMONIUM METHYLSULFATE
     Indication: GOUT
     Dosage: 2 DOSAGE FORM, DAILY
     Route: 048
     Dates: start: 20210406, end: 20210413
  2. KARDEGIC [Concomitant]
     Active Substance: ASPIRIN DL-LYSINE
     Indication: PRODUCT USED FOR UNKNOWN INDICATION
     Dosage: UNK
     Route: 065
  3. ALLOPURINOL. [Suspect]
     Active Substance: ALLOPURINOL
     Indication: GOUT
     Dosage: 300 MILLIGRAM, DAILY
     Route: 048
  4. RAMIPRIL MYLAN [Suspect]
     Active Substance: RAMIPRIL
     Indication: HYPERTENSION
     Dosage: 1 DOSAGE FORM, IN TOTAL
     Route: 048
     Dates: end: 20210413
  5. DEXERYL [Concomitant]
     Indication: PRODUCT USED FOR UNKNOWN INDICATION
     Dosage: UNK
     Route: 065
  6. FUROSEMIDE. [Suspect]
     Active Substance: FUROSEMIDE
     Indication: HYPERTENSION
     Dosage: 60 MILLIGRAM, IN TOTAL
     Route: 048
     Dates: end: 20210413
  7. BISOPROLOL (FUMARATE ACIDE DE) [Concomitant]
     Active Substance: BISOPROLOL FUMARATE
     Indication: PRODUCT USED FOR UNKNOWN INDICATION
     Dosage: UNK
     Route: 065

REACTIONS (4)
  - Vomiting [Recovered/Resolved]
  - Diarrhoea [Recovered/Resolved]
  - Confusional state [Recovered/Resolved]
  - Acute kidney injury [Recovered/Resolved]

NARRATIVE: CASE EVENT DATE: 20210410
